FAERS Safety Report 7670991-4 (Version None)
Quarter: 2011Q3

REPORT INFORMATION
  Report Type: 
  Country: None (occurrence: None)
  Receive Date: 20110809
  Receipt Date: 20110804
  Transmission Date: 20111222
  Serious: Yes (Death, Hospitalization, Other)
  Sender: FDA-Public Use
  Company Number: US-AMGEN-USASP2010011091

PATIENT
  Age: 80 Year
  Sex: Male

DRUGS (8)
  1. ALLOPURINOL [Concomitant]
     Dosage: 100 MG, QD
  2. NPLATE [Suspect]
     Indication: IDIOPATHIC THROMBOCYTOPENIC PURPURA
     Dosage: 8 A?G/KG, UNK
     Route: 058
     Dates: start: 20100407, end: 20100901
  3. LASIX [Concomitant]
     Dosage: 40 MG, UNK
  4. LASIX [Concomitant]
     Dosage: 60 MG, QD
  5. NIFEDIPINE [Concomitant]
     Dosage: 60 MG, QD
  6. PREVACID [Concomitant]
     Dosage: 15 MG, QD
  7. COLCHICINE [Concomitant]
     Dosage: 0.6 MG, QD
  8. TYLENOL (CAPLET) [Concomitant]
     Dosage: 650 MG, Q4H

REACTIONS (6)
  - WHITE BLOOD CELL COUNT INCREASED [None]
  - T-CELL LYMPHOMA [None]
  - MYELODYSPLASTIC SYNDROME [None]
  - THROMBOCYTOPENIA [None]
  - LYMPHADENOPATHY [None]
  - MYELOPROLIFERATIVE DISORDER [None]
